FAERS Safety Report 5669333-5 (Version None)
Quarter: 2008Q1

REPORT INFORMATION
  Report Type: 
  Country: None (occurrence: None)
  Receive Date: 20080317
  Receipt Date: 20080304
  Transmission Date: 20080703
  Serious: Yes (Hospitalization)
  Sender: FDA-Public Use
  Company Number: PHHO2008FR03156

PATIENT
  Age: 55 Year
  Sex: Female
  Weight: 75 kg

DRUGS (2)
  1. MYFORTIC [Suspect]
     Indication: SYSTEMIC LUPUS ERYTHEMATOSUS
     Dosage: 2160 MG, QD
     Route: 048
     Dates: start: 20080220, end: 20080227
  2. MYFORTIC [Suspect]
     Route: 048
     Dates: start: 20080205, end: 20080219

REACTIONS (4)
  - DEHYDRATION [None]
  - DIARRHOEA [None]
  - RENAL FAILURE ACUTE [None]
  - VOMITING [None]
